FAERS Safety Report 18286924 (Version 2)
Quarter: 2021Q1

REPORT INFORMATION
  Report Type: Report from Study
  Country: None (occurrence: US)
  Receive Date: 20200921
  Receipt Date: 20210213
  Transmission Date: 20210419
  Serious: Yes (Other)
  Sender: FDA-Public Use
  Company Number: US-ABBVIE-20K-163-3571428-00

PATIENT
  Age: 22 Year
  Sex: Female
  Weight: 45.4 kg

DRUGS (2)
  1. ORILISSA [Suspect]
     Active Substance: ELAGOLIX SODIUM
     Indication: ENDOMETRIOSIS
     Dosage: ONCE DAILY
     Route: 048
     Dates: start: 201905
  2. ORILISSA [Suspect]
     Active Substance: ELAGOLIX SODIUM
     Dosage: ONCE DAILY
     Route: 048
     Dates: start: 202002, end: 202003

REACTIONS (7)
  - Pain [Recovered/Resolved]
  - Depression [Unknown]
  - Feeling abnormal [Unknown]
  - Anxiety [Unknown]
  - Night sweats [Unknown]
  - Mood swings [Unknown]
  - Surgery [Unknown]

NARRATIVE: CASE EVENT DATE: 202008
